FAERS Safety Report 17798508 (Version 1)
Quarter: 2020Q2

REPORT INFORMATION
  Report Type: Spontaneous
  Country: SK (occurrence: SK)
  Receive Date: 20200518
  Receipt Date: 20200518
  Transmission Date: 20200714
  Serious: Yes (Other)
  Sender: FDA-Public Use
  Company Number: SK-TEVA-2020-SK-1235901

PATIENT
  Age: 69 Year
  Sex: Female
  Weight: 68 kg

DRUGS (1)
  1. MONTELUKAST TEVA [Suspect]
     Active Substance: MONTELUKAST SODIUM
     Indication: ASTHMA
     Dosage: 10 MILLIGRAM DAILY; 0-0-1
     Route: 048
     Dates: start: 20200201, end: 20200209

REACTIONS (4)
  - Dyspnoea [Recovering/Resolving]
  - Cough [Recovering/Resolving]
  - Abdominal pain upper [Recovering/Resolving]
  - Nausea [Recovering/Resolving]

NARRATIVE: CASE EVENT DATE: 20200201
